FAERS Safety Report 12426804 (Version 2)
Quarter: 2016Q3

REPORT INFORMATION
  Report Type: Spontaneous
  Country: US (occurrence: US)
  Receive Date: 20160601
  Receipt Date: 20160721
  Transmission Date: 20161109
  Serious: Yes (Other)
  Sender: FDA-Public Use
  Company Number: US-JAZZ-2014-US-001252

PATIENT
  Sex: Female

DRUGS (3)
  1. XYREM [Suspect]
     Active Substance: SODIUM OXYBATE
     Dosage: 6 G, BID
     Route: 048
     Dates: start: 200907, end: 2014
  2. XYREM [Suspect]
     Active Substance: SODIUM OXYBATE
     Indication: NARCOLEPSY
     Dosage: 3 G, BID
     Route: 048
     Dates: start: 200604, end: 2006
  3. XYREM [Suspect]
     Active Substance: SODIUM OXYBATE
     Dosage: DOSE ADJUSTMENTS
     Route: 048
     Dates: start: 2006, end: 200907

REACTIONS (13)
  - Feeling abnormal [Not Recovered/Not Resolved]
  - Hypophagia [Unknown]
  - Disorientation [Unknown]
  - Pituitary tumour [Not Recovered/Not Resolved]
  - Activities of daily living impaired [Not Recovered/Not Resolved]
  - Incontinence [Not Recovered/Not Resolved]
  - Intentional self-injury [Unknown]
  - Sluggishness [Unknown]
  - Nausea [Unknown]
  - Communication disorder [Unknown]
  - Condition aggravated [Not Recovered/Not Resolved]
  - Stress [Unknown]
  - Headache [Unknown]

NARRATIVE: CASE EVENT DATE: 2014
